FAERS Safety Report 16863559 (Version 2)
Quarter: 2019Q4

REPORT INFORMATION
  Report Type: Report from Study
  Country: DE (occurrence: DE)
  Receive Date: 20190927
  Receipt Date: 20191028
  Transmission Date: 20200122
  Serious: Yes (Other)
  Sender: FDA-Public Use
  Company Number: DE-INCYTE CORPORATION-2018IN004181

PATIENT

DRUGS (6)
  1. JAKAVI [Suspect]
     Active Substance: RUXOLITINIB
     Dosage: 20 MG, BID
     Route: 048
     Dates: start: 20180314, end: 20180603
  2. JAKAVI [Suspect]
     Active Substance: RUXOLITINIB
     Dosage: 15 MG, BID
     Route: 048
     Dates: start: 20181001
  3. JAKAVI [Suspect]
     Active Substance: RUXOLITINIB
     Dosage: 15 MG, BID
     Route: 048
     Dates: start: 20180604, end: 20180715
  4. JAKAVI [Suspect]
     Active Substance: RUXOLITINIB
     Dosage: 13 MG, BID
     Route: 048
     Dates: start: 20180716, end: 20180930
  5. RAMIPRIL HCT [Concomitant]
     Active Substance: HYDROCHLOROTHIAZIDE\RAMIPRIL
     Indication: HYPERTENSION
     Dosage: 1 DOSAGE FORM
     Route: 048
  6. JAKAVI [Suspect]
     Active Substance: RUXOLITINIB
     Indication: POLYCYTHAEMIA VERA
     Dosage: 18 MG, BID
     Route: 048
     Dates: start: 20180201, end: 20180313

REACTIONS (3)
  - Vomiting [Recovered/Resolved]
  - Thrombocytosis [Recovered/Resolved]
  - Blast cell count increased [Unknown]

NARRATIVE: CASE EVENT DATE: 20180314
